FAERS Safety Report 5198103-X (Version None)
Quarter: 2006Q4

REPORT INFORMATION
  Report Type: 
  Country: None (occurrence: None)
  Receive Date: 20061228
  Receipt Date: 20061228
  Transmission Date: 20070319
  Serious: Yes (Hospitalization)
  Sender: FDA-Public Use
  Company Number: None

PATIENT
  Sex: Female
  Weight: 65.5 kg

DRUGS (3)
  1. MELPHALAN [Suspect]
     Dosage: 334 MG
     Dates: end: 20061002
  2. CYCLOPHOSPHAMIDE [Suspect]
     Dosage: 5010 MG
     Dates: end: 20060908
  3. G-CSF (FILGRASTIM, AMGEN) [Suspect]
     Dosage: 2310 MG
     Dates: end: 20060919

REACTIONS (6)
  - BRONCHITIS [None]
  - DEHYDRATION [None]
  - DIARRHOEA [None]
  - FEBRILE NEUTROPENIA [None]
  - HYPOKALAEMIA [None]
  - VIRAL INFECTION [None]
